FAERS Safety Report 14151953 (Version 2)
Quarter: 2018Q1

REPORT INFORMATION
  Report Type: Spontaneous
  Country: IT (occurrence: IT)
  Receive Date: 20171102
  Receipt Date: 20180307
  Transmission Date: 20180508
  Serious: Yes (Hospitalization)
  Sender: FDA-Public Use
  Company Number: IT-ACCORD-060486

PATIENT
  Age: 49 Year
  Sex: Female

DRUGS (5)
  1. CITALOPRAM [Concomitant]
     Active Substance: CITALOPRAM HYDROBROMIDE
     Indication: PRODUCT USED FOR UNKNOWN INDICATION
     Route: 048
  2. QUETIAPINE. [Suspect]
     Active Substance: QUETIAPINE
     Route: 048
     Dates: start: 20160816, end: 20160816
  3. LEVOPRAID [Concomitant]
     Indication: PRODUCT USED FOR UNKNOWN INDICATION
     Route: 048
  4. RIVOTRIL [Suspect]
     Active Substance: CLONAZEPAM
     Route: 048
     Dates: start: 20160816, end: 20160816
  5. GABAPENTIN MYLAN GENERICS [Suspect]
     Active Substance: GABAPENTIN
     Dosage: STRENGTH: 300 MG, CAPSULE RIGIDE
     Route: 048
     Dates: start: 20160816, end: 20160816

REACTIONS (5)
  - Intentional self-injury [Unknown]
  - Sopor [Recovering/Resolving]
  - Extrapyramidal disorder [Recovering/Resolving]
  - Tachycardia [Recovering/Resolving]
  - Drug abuse [Unknown]

NARRATIVE: CASE EVENT DATE: 20160816
